FAERS Safety Report 16189806 (Version 1)
Quarter: 2019Q2

REPORT INFORMATION
  Report Type: Spontaneous
  Country: US (occurrence: US)
  Receive Date: 20190308
  Receipt Date: 20190308
  Transmission Date: 20190711
  Serious: No
  Sender: FDA-Public Use
  Company Number: None

PATIENT
  Age: 50 Year
  Sex: Female

DRUGS (1)
  1. COPAXONE [Suspect]
     Active Substance: GLATIRAMER ACETATE
     Dates: start: 1999

REACTIONS (3)
  - Lipoatrophy [None]
  - Injection site reaction [None]
  - Hot flush [None]

NARRATIVE: CASE EVENT DATE: 20190101
